FAERS Safety Report 6388037-7 (Version None)
Quarter: 2009Q4

REPORT INFORMATION
  Report Type: 
  Country: None (occurrence: None)
  Receive Date: 20091005
  Receipt Date: 20090921
  Transmission Date: 20100525
  Serious: Yes (Hospitalization)
  Sender: FDA-Public Use
  Company Number: CH-MYLANLABS-2009S1016559

PATIENT
  Age: 43 Year
  Sex: Male

DRUGS (3)
  1. PREDNISONE TAB [Suspect]
     Indication: COLITIS ULCERATIVE
  2. AZATHIOPRINE [Suspect]
     Indication: COLITIS ULCERATIVE
     Dosage: INCREASED TO 100 MG/DAY AFTER 2 WEEKS
  3. AZATHIOPRINE [Suspect]

REACTIONS (2)
  - HEPATIC FAILURE [None]
  - HEPATITIS B [None]
